FAERS Safety Report 11473952 (Version 1)
Quarter: 2015Q3

REPORT INFORMATION
  Report Type: Spontaneous
  Country: US (occurrence: US)
  Receive Date: 20150908
  Receipt Date: 20150908
  Transmission Date: 20151125
  Serious: No
  Sender: FDA-Public Use
  Company Number: US-JAZZ-2013-US-003223

PATIENT
  Age: 52 Year
  Sex: Male

DRUGS (48)
  1. DUVOID [Concomitant]
     Active Substance: BETHANECHOL CHLORIDE
     Indication: PRODUCT USED FOR UNKNOWN INDICATION
     Dosage: 40 MG, QID
     Dates: start: 20130401, end: 20130719
  2. WELLBUTRIN [Concomitant]
     Active Substance: BUPROPION HYDROCHLORIDE
     Indication: PRODUCT USED FOR UNKNOWN INDICATION
     Dosage: 100 MG, QD
     Dates: start: 20130404, end: 20130719
  3. MASTICALCIO [Concomitant]
     Indication: NAUSEA
     Dosage: 1000 MG, PRN
     Dates: start: 20130314
  4. FAMCICLOVIR. [Concomitant]
     Active Substance: FAMCICLOVIR
     Indication: VIRAL INFECTION
     Dosage: 500 MG, QD
     Dates: start: 20130201
  5. AMANTADINE [Concomitant]
     Active Substance: AMANTADINE
     Indication: VIRAL INFECTION
     Dosage: 100 MG, BID
     Dates: start: 20130208
  6. FLUCONAZOLE. [Concomitant]
     Active Substance: FLUCONAZOLE
     Indication: FUNGAL INFECTION
     Dosage: 200 MG, QD
     Dates: start: 20130315, end: 20130709
  7. XYREM [Suspect]
     Active Substance: SODIUM OXYBATE
     Dosage: 4.5 G, SECOND DOSE
     Route: 048
     Dates: start: 201311
  8. ENERGY SUPPORT [Concomitant]
     Indication: SUPPLEMENTATION THERAPY
     Dosage: 1 SCCOP
     Dates: start: 20120821
  9. CABERGOLINE. [Concomitant]
     Active Substance: CABERGOLINE
     Indication: PRODUCT USED FOR UNKNOWN INDICATION
     Dosage: 0.5 MG, TWICE A WEEK
     Dates: start: 20130401
  10. RIBOSE [Concomitant]
     Active Substance: DIETARY SUPPLEMENT
     Indication: METABOLIC DISORDER
     Dosage: 5 G, BID
     Dates: start: 20121221
  11. SAW PALMETTO STANDARDIZED EXTRACT [Concomitant]
     Indication: ALOPECIA
     Dosage: 160 MG, BID
     Dates: start: 20121221
  12. GONADOTROPIN CHORIONIC [Concomitant]
     Indication: PAIN
     Dosage: 0.2 ML, QD
     Dates: start: 20121228
  13. ADRENALIN CL [Concomitant]
     Indication: HORMONE THERAPY
     Dosage: UNK, BID
     Dates: start: 20121221
  14. FIBER [Concomitant]
     Active Substance: PSYLLIUM HUSK
     Indication: SUPPLEMENTATION THERAPY
     Dosage: 28 G, QD
     Dates: start: 20110326
  15. ENZYMES [Concomitant]
     Indication: NAUSEA
     Dosage: UNK
     Dates: start: 20130314
  16. HYDRA JOINT [Concomitant]
     Indication: DRY MOUTH
     Dosage: 500 MG, QD
     Dates: start: 20120205
  17. AZITHROMYCIN [Concomitant]
     Active Substance: AZITHROMYCIN ANHYDROUS
     Indication: PRODUCT USED FOR UNKNOWN INDICATION
     Dosage: 250 MG, QD
     Dates: start: 20121221
  18. XYREM [Suspect]
     Active Substance: SODIUM OXYBATE
     Indication: LYME DISEASE
     Dosage: 4.5 G, BID
     Route: 048
     Dates: start: 200402, end: 200406
  19. MACAS [Concomitant]
     Indication: SUPPLEMENTATION THERAPY
     Dosage: 6000 MG, QD
     Dates: start: 20120716
  20. ZINC [Concomitant]
     Active Substance: ZINC\ZINC CHLORIDE
     Indication: IMMUNE SYSTEM DISORDER
     Dosage: 20 MG, QD
     Dates: start: 20130206
  21. PROBIOTIC ACIDOPHILUS [Concomitant]
     Active Substance: LACTOBACILLUS ACIDOPHILUS
     Indication: PROBIOTIC THERAPY
     Dosage: 45 B.CFU ONCE DAILY
     Dates: start: 20130401
  22. LYRICA [Concomitant]
     Active Substance: PREGABALIN
     Indication: PAIN
     Dosage: 50 MG, QID
     Dates: start: 20121221
  23. NALTREXONE HYDROCHLORIDE. [Concomitant]
     Active Substance: NALTREXONE HYDROCHLORIDE
     Indication: PAIN
     Dosage: 4.5 MG, QD
     Dates: start: 20121221
  24. OMEGA-3 ACIDS [Concomitant]
     Active Substance: OMEGA-3 FATTY ACIDS
     Indication: SUPPLEMENTATION THERAPY
     Dosage: 1 MG, QD
     Dates: start: 20111001
  25. SEROQUEL [Concomitant]
     Active Substance: QUETIAPINE FUMARATE
     Indication: PRODUCT USED FOR UNKNOWN INDICATION
     Dosage: 25 MG, QD
     Dates: start: 20130401, end: 20130405
  26. CIALIS [Concomitant]
     Active Substance: TADALAFIL
     Indication: SEXUAL DYSFUNCTION
     Dosage: 5 MG, QD
     Dates: start: 20130610
  27. BLACK COHOSH [Concomitant]
     Active Substance: BLACK COHOSH
     Indication: NIGHT SWEATS
     Dosage: 20 MG, BID
     Dates: start: 20121221
  28. PRIMADOPHILUS BIFIDUS [Concomitant]
     Indication: SUPPLEMENTATION THERAPY
     Dosage: 35 B.CFU ONCE DAILY
     Dates: start: 20121221
  29. DHEA [Concomitant]
     Active Substance: PRASTERONE
     Indication: HORMONE THERAPY
     Dosage: 25 MG, QD
     Dates: start: 20121221
  30. XYREM [Suspect]
     Active Substance: SODIUM OXYBATE
     Dosage: 5.5 G, FIRST DOSE
     Route: 048
     Dates: start: 201311
  31. CAPHOSOL [Concomitant]
     Indication: PRODUCT USED FOR UNKNOWN INDICATION
     Dosage: 2 VIALS
     Dates: start: 20130317
  32. ENZYME [Concomitant]
     Indication: NAUSEA
     Dosage: 2-3
     Dates: start: 20130205
  33. NYSTATIN. [Concomitant]
     Active Substance: NYSTATIN
     Indication: FUNGAL INFECTION
     Dosage: 500000 IU, BID
     Dates: start: 20130710
  34. NASENSPRAY CT [Concomitant]
     Indication: SINUSITIS
     Dosage: 2 SPRAYS
     Dates: start: 20121221
  35. CURAMIN [Concomitant]
     Active Substance: HERBALS
     Indication: SUPPLEMENTATION THERAPY
     Dosage: 1440 MG, QD
     Dates: start: 20120716
  36. TRAZODONE HYDROCHLORIDE. [Concomitant]
     Active Substance: TRAZODONE HYDROCHLORIDE
     Indication: PRODUCT USED FOR UNKNOWN INDICATION
     Dosage: 50 MG, BID
     Dates: start: 20130218, end: 20130330
  37. DOXEPIN HCL [Concomitant]
     Active Substance: DOXEPIN HYDROCHLORIDE
     Indication: PRODUCT USED FOR UNKNOWN INDICATION
     Dosage: 5 MG, QD
     Dates: end: 20130218
  38. PROTEIN [Concomitant]
     Active Substance: PROTEIN
     Indication: IMMUNE SYSTEM DISORDER
     Dosage: 12 UNK, QD
     Dates: start: 20130315
  39. COENZYME Q10 [Concomitant]
     Active Substance: UBIDECARENONE
     Indication: METABOLIC DISORDER
     Dosage: 200 MG, QD
     Dates: start: 20121221
  40. LAURICIN [Concomitant]
     Indication: SUPPLEMENTATION THERAPY
     Dosage: 2 SCOOPS
     Dates: start: 20121221
  41. MAGNESIUM [Concomitant]
     Active Substance: MAGNESIUM
     Indication: PAIN
     Dosage: 2 G, ONCE A WEEK
     Dates: start: 20130320
  42. ULTRAM [Concomitant]
     Active Substance: TRAMADOL HYDROCHLORIDE
     Indication: PAIN
     Dosage: 50 MG,  SOMETIMES PRN
     Dates: start: 20130402
  43. HYDROCORTISONE. [Concomitant]
     Active Substance: HYDROCORTISONE
     Indication: HORMONE THERAPY
     Dosage: 5 MG, TID
     Dates: start: 20130213
  44. THYROID HORMONES [Concomitant]
     Active Substance: UNSPECIFIED INGREDIENT
     Indication: HORMONE THERAPY
     Dosage: UNK, BID
     Dates: start: 20121221
  45. XYREM [Suspect]
     Active Substance: SODIUM OXYBATE
     Indication: PAIN
     Dosage: DOSE ADJUSTMENTS
     Route: 048
  46. NEURONTIN [Concomitant]
     Active Substance: GABAPENTIN
     Indication: PRODUCT USED FOR UNKNOWN INDICATION
     Dosage: 300 MG, TID
     Dates: start: 20130406, end: 20130423
  47. GLOBULIN S [Concomitant]
     Indication: IMMUNE SYSTEM DISORDER
     Dosage: UNK
     Dates: start: 20130320
  48. ARGININE HCL [Concomitant]
     Active Substance: ARGININE HYDROCHLORIDE
     Indication: SEXUAL DYSFUNCTION
     Dosage: 1000 MG, QD
     Dates: start: 20130610

REACTIONS (11)
  - Testicular failure [Not Recovered/Not Resolved]
  - Off label use [Unknown]
  - Lyme disease [Not Recovered/Not Resolved]
  - Chronic fatigue syndrome [Not Recovered/Not Resolved]
  - Adrenal insufficiency [Not Recovered/Not Resolved]
  - Prescribed overdose [Unknown]
  - Infection [Not Recovered/Not Resolved]
  - Fibromyalgia [Not Recovered/Not Resolved]
  - Thyroid disorder [Not Recovered/Not Resolved]
  - Condition aggravated [Not Recovered/Not Resolved]
  - Viral infection [Not Recovered/Not Resolved]

NARRATIVE: CASE EVENT DATE: 200402
